FAERS Safety Report 9369653 (Version 1)
Quarter: 2013Q2

REPORT INFORMATION
  Report Type: Spontaneous
  Country: US (occurrence: US)
  Receive Date: 20130626
  Receipt Date: 20130626
  Transmission Date: 20140414
  Serious: No
  Sender: FDA-Public Use
  Company Number: US-009507513-1306USA009501

PATIENT
  Sex: Male

DRUGS (1)
  1. HYZAAR [Suspect]
     Dosage: UNK
     Route: 048

REACTIONS (3)
  - Decreased appetite [Unknown]
  - Constipation [Unknown]
  - Abdominal discomfort [Unknown]
